FAERS Safety Report 14075434 (Version 1)
Quarter: 2017Q4

REPORT INFORMATION
  Report Type: Report from Study
  Country: TW (occurrence: TW)
  Receive Date: 20171011
  Receipt Date: 20171011
  Transmission Date: 20180321
  Serious: Yes (Other)
  Sender: FDA-Public Use
  Company Number: TW-MYLANLABS-2017M1063353

PATIENT
  Sex: Female

DRUGS (1)
  1. CISPLATIN. [Suspect]
     Active Substance: CISPLATIN
     Indication: BLADDER CANCER
     Dosage: RECEIVED AS A PART OF INDUCTION CHEMOTHERAPY FOLLOWED BY SIX WEEKLY WITH RADIATION THERAPY
     Route: 065

REACTIONS (1)
  - Urogenital fistula [Recovered/Resolved]
